FAERS Safety Report 8551044-X (Version None)
Quarter: 2012Q3

REPORT INFORMATION
  Report Type: 
  Country: None (occurrence: None)
  Receive Date: 20120730
  Receipt Date: 20120720
  Transmission Date: 20120928
  Serious: Yes (Hospitalization)
  Sender: FDA-Public Use
  Company Number: FR-BAXTER-2012BAX012026

PATIENT
  Sex: Female

DRUGS (2)
  1. KIOVIG [Suspect]
     Dates: start: 20120401
  2. KIOVIG [Suspect]
     Route: 042
     Dates: start: 20120620, end: 20120620

REACTIONS (5)
  - TINNITUS [None]
  - VOMITING [None]
  - TACHYCARDIA [None]
  - VERTIGO [None]
  - MALAISE [None]
